FAERS Safety Report 6002019-6 (Version None)
Quarter: 2008Q4

REPORT INFORMATION
  Report Type: 
  Country: None (occurrence: None)
  Receive Date: 20081212
  Receipt Date: 20081209
  Transmission Date: 20090506
  Serious: Yes (Other)
  Sender: FDA-Public Use
  Company Number: 1000003117

PATIENT

DRUGS (3)
  1. LEXAPRO [Suspect]
     Dosage: ORAL
     Route: 048
     Dates: start: 20080101
  2. ULTRAM [Suspect]
     Indication: PAIN
     Dosage: 300 MG (300 MG, 1 IN 1 D), ORAL
     Route: 048
     Dates: end: 20080101
  3. FLEXERIL [Suspect]
     Indication: MUSCLE RELAXANT THERAPY
     Dosage: ORAL
     Route: 048
     Dates: start: 20080101, end: 20080101

REACTIONS (1)
  - CONVULSION [None]
